FAERS Safety Report 8317051-7 (Version None)
Quarter: 2012Q2

REPORT INFORMATION
  Report Type: 
  Country: None (occurrence: None)
  Receive Date: 20120427
  Receipt Date: 20120420
  Transmission Date: 20120825
  Serious: Yes (Other)
  Sender: FDA-Public Use
  Company Number: BR-PFIZER INC-2012093766

PATIENT
  Age: 84 Year
  Sex: Female
  Weight: 73 kg

DRUGS (4)
  1. ZOLOFT [Concomitant]
     Dosage: 50 MG, 1X/DAY, IN THE EVENING
  2. MICARDIS HCT [Concomitant]
     Dosage: 1 TABLET DAILY
     Route: 048
  3. SUTENT [Suspect]
     Indication: RENAL CELL CARCINOMA
     Dosage: 50 MG, 1X/DAY
     Route: 048
     Dates: start: 20120409
  4. TAPAZOL [Concomitant]
     Dosage: 10 MG, 1X/DAY, AT LUNCH

REACTIONS (6)
  - URINARY TRACT INFECTION [None]
  - DYSGEUSIA [None]
  - DEPRESSED MOOD [None]
  - NAUSEA [None]
  - BLOOD TEST ABNORMAL [None]
  - TOOTHACHE [None]
